FAERS Safety Report 7309407-6 (Version None)
Quarter: 2011Q1

REPORT INFORMATION
  Report Type: 
  Country: None (occurrence: None)
  Receive Date: 20110223
  Receipt Date: 20110211
  Transmission Date: 20110831
  Serious: Yes (Other)
  Sender: FDA-Public Use
  Company Number: VE-GENENTECH-313836

PATIENT
  Sex: Female
  Weight: 48 kg

DRUGS (1)
  1. MABTHERA [Suspect]
     Indication: NON-HODGKIN'S LYMPHOMA
     Dosage: 600 MG/M2, UNK
     Route: 042
     Dates: start: 20101201

REACTIONS (1)
  - ASPHYXIA [None]
